FAERS Safety Report 8194336-9 (Version None)
Quarter: 2012Q1

REPORT INFORMATION
  Report Type: 
  Country: None (occurrence: None)
  Receive Date: 20120308
  Receipt Date: 20120305
  Transmission Date: 20120608
  Serious: No
  Sender: FDA-Public Use
  Company Number: US-PFIZER INC-2012059117

PATIENT
  Sex: Female
  Weight: 86.168 kg

DRUGS (4)
  1. LISINOPRIL [Concomitant]
     Indication: HYPERTENSION
     Dosage: UNK
  2. CYMBALTA [Concomitant]
     Indication: DEPRESSION
     Dosage: UNK
  3. ESTRADIOL [Concomitant]
     Dosage: UNK
  4. LYRICA [Suspect]
     Indication: NERVE INJURY
     Dosage: 100 MG, 2X/DAY
     Route: 048
     Dates: end: 20111201

REACTIONS (1)
  - PAIN [None]
